FAERS Safety Report 4657464-8 (Version None)
Quarter: 2005Q2

REPORT INFORMATION
  Report Type: 
  Country: None (occurrence: None)
  Receive Date: 20050510
  Receipt Date: 20050426
  Transmission Date: 20051028
  Serious: Yes (Hospitalization)
  Sender: FDA-Public Use
  Company Number: US-JNJFOC-20050401216

PATIENT
  Sex: Female
  Weight: 58.97 kg

DRUGS (7)
  1. TOPAMAX [Suspect]
     Route: 049
  2. TOPAMAX [Suspect]
     Route: 049
  3. KEPPRA [Suspect]
     Route: 049
  4. KEPPRA [Suspect]
     Route: 049
  5. KEPPRA [Suspect]
     Route: 049
  6. KEPPRA [Suspect]
     Route: 049
  7. MIDODRINE HCL [Concomitant]
     Indication: HYPOTENSION
     Route: 065

REACTIONS (5)
  - CONVULSION [None]
  - ENURESIS [None]
  - LOSS OF CONSCIOUSNESS [None]
  - ORTHOSTATIC HYPOTENSION [None]
  - URINARY INCONTINENCE [None]
